FAERS Safety Report 21384618 (Version 1)
Quarter: 2022Q3

REPORT INFORMATION
  Report Type: Spontaneous
  Country: US (occurrence: US)
  Receive Date: 20220928
  Receipt Date: 20220928
  Transmission Date: 20221027
  Serious: No
  Sender: FDA-Public Use
  Company Number: US-HORIZON THERAPEUTICS-HZN-2021-006890

PATIENT

DRUGS (3)
  1. KRYSTEXXA [Suspect]
     Active Substance: PEGLOTICASE
     Indication: Product used for unknown indication
     Dosage: 1ST INFUSION
     Route: 065
     Dates: start: 20210718
  2. KRYSTEXXA [Suspect]
     Active Substance: PEGLOTICASE
     Dosage: 2ND INFUSION
     Route: 065
     Dates: start: 20210914
  3. METHOTREXATE [Concomitant]
     Active Substance: METHOTREXATE
     Indication: Product used for unknown indication
     Dosage: WEEKLY

REACTIONS (2)
  - Blood uric acid increased [Unknown]
  - Inappropriate schedule of product administration [Unknown]
